FAERS Safety Report 13618889 (Version 1)
Quarter: 2017Q2

REPORT INFORMATION
  Report Type: Spontaneous
  Country: US (occurrence: US)
  Receive Date: 20170606
  Receipt Date: 20170606
  Transmission Date: 20170830
  Serious: No
  Sender: FDA-Public Use
  Company Number: None

PATIENT
  Age: 49 Year
  Sex: Female

DRUGS (18)
  1. OXYBUTYNIN [Concomitant]
     Active Substance: OXYBUTYNIN
  2. ONDANSETRON [Concomitant]
     Active Substance: ONDANSETRON
  3. SERTRALINE [Concomitant]
     Active Substance: SERTRALINE HYDROCHLORIDE
  4. D [Concomitant]
  5. HCTZ [Concomitant]
     Active Substance: HYDROCHLOROTHIAZIDE
  6. CIPRO [Concomitant]
     Active Substance: CIPROFLOXACIN HYDROCHLORIDE
  7. VALACYCLOVIR [Concomitant]
     Active Substance: VALACYCLOVIR HYDROCHLORIDE
  8. FLUCONAZOLE. [Concomitant]
     Active Substance: FLUCONAZOLE
  9. URSODIOL. [Concomitant]
     Active Substance: URSODIOL
  10. AMLODIPINE [Concomitant]
     Active Substance: AMLODIPINE BESYLATE
  11. AMPICILLIN [Concomitant]
     Active Substance: AMPICILLIN
  12. OXYCO/APAP [Concomitant]
  13. FAMOTIDINE. [Concomitant]
     Active Substance: FAMOTIDINE
  14. ACYCLOVIR. [Concomitant]
     Active Substance: ACYCLOVIR
  15. OCALIVA [Suspect]
     Active Substance: OBETICHOLIC ACID
     Indication: BILIARY CIRRHOSIS PRIMARY
     Route: 048
     Dates: start: 20170314
  16. PHENAZOPYRIDINE. [Concomitant]
     Active Substance: PHENAZOPYRIDINE
  17. MAG OX [Concomitant]
     Active Substance: MAGNESIUM OXIDE
  18. RIFAMPIN. [Concomitant]
     Active Substance: RIFAMPIN

REACTIONS (2)
  - Infection [None]
  - Drug dose omission [None]

NARRATIVE: CASE EVENT DATE: 20170520
